FAERS Safety Report 5140273-3 (Version None)
Quarter: 2006Q4

REPORT INFORMATION
  Report Type: 
  Country: None (occurrence: None)
  Receive Date: 20061031
  Receipt Date: 20030501
  Transmission Date: 20070319
  Serious: Yes (Hospitalization)
  Sender: FDA-Public Use
  Company Number: US-GLAXOSMITHKLINE-A0607355A

PATIENT
  Age: 72 Year
  Sex: Male
  Weight: 79.1 kg

DRUGS (2)
  1. LOTRONEX [Suspect]
     Dosage: 1MG PER DAY
     Route: 048
     Dates: start: 20000701, end: 20000101
  2. NPH INSULIN [Concomitant]

REACTIONS (8)
  - ABDOMINAL DISTENSION [None]
  - ABDOMINAL PAIN [None]
  - DEFAECATION URGENCY [None]
  - GASTROINTESTINAL INJURY [None]
  - ILEUS [None]
  - INTESTINAL ISCHAEMIA [None]
  - MASS [None]
  - NAUSEA [None]
